FAERS Safety Report 25867094 (Version 1)
Quarter: 2025Q4

REPORT INFORMATION
  Report Type: Spontaneous
  Country: CA (occurrence: CA)
  Receive Date: 20251001
  Receipt Date: 20251001
  Transmission Date: 20260118
  Serious: Yes (Disabling, Other)
  Sender: AUROBINDO
  Company Number: CA-AUROBINDO-AUR-APL-2025-049465

PATIENT
  Age: 81 Year
  Sex: Female
  Weight: 62.585 kg

DRUGS (2)
  1. ALENDRONIC ACID [Suspect]
     Active Substance: ALENDRONIC ACID
     Indication: Osteoporosis
     Dosage: 70 MILLIGRAM, EVERY WEEK
     Route: 048
  2. SYNTHROID [Concomitant]
     Active Substance: LEVOTHYROXINE SODIUM
     Indication: Product used for unknown indication
     Dosage: UNK
     Route: 065

REACTIONS (9)
  - Pruritus [Recovered/Resolved]
  - Arthralgia [Recovered/Resolved]
  - Gait disturbance [Recovered/Resolved]
  - Gastrointestinal pain [Recovered/Resolved]
  - Hypoaesthesia [Recovered/Resolved]
  - Incontinence [Recovered/Resolved]
  - Joint stiffness [Recovered/Resolved]
  - Joint swelling [Recovered/Resolved]
  - Myalgia [Recovered/Resolved]
